FAERS Safety Report 10818150 (Version 2)
Quarter: 2015Q3

REPORT INFORMATION
  Report Type: Spontaneous
  Country: IT (occurrence: IT)
  Receive Date: 20150218
  Receipt Date: 20150709
  Transmission Date: 20151125
  Serious: Yes (Other)
  Sender: FDA-Public Use
  Company Number: IT-PFIZER INC-2015061702

PATIENT
  Age: 83 Year
  Sex: Male

DRUGS (11)
  1. TARDYFER [Concomitant]
     Active Substance: FERROUS SULFATE\FERROUS SULFATE, DRIED
  2. METFORMIN HCL [Concomitant]
     Active Substance: METFORMIN HYDROCHLORIDE
  3. LANSOX [Concomitant]
     Active Substance: LANSOPRAZOLE
     Dosage: 1 DF, UNK
     Route: 048
  4. TRITTICO [Concomitant]
     Active Substance: TRAZODONE HYDROCHLORIDE
     Dosage: 1 DF, UNK
     Route: 048
  5. HALCION [Suspect]
     Active Substance: TRIAZOLAM
     Indication: AGITATION
     Dosage: 1 DF, DAILY
     Route: 048
     Dates: start: 20150210, end: 20150211
  6. ALDACTONE [Concomitant]
     Active Substance: SPIRONOLACTONE
     Dosage: 1 DF, UNK
     Route: 048
  7. HUMALOG [Concomitant]
     Active Substance: INSULIN LISPRO
  8. LANTUS [Concomitant]
     Active Substance: INSULIN GLARGINE
  9. TACHIDOL [Concomitant]
     Active Substance: ACETAMINOPHEN\CODEINE PHOSPHATE
  10. NORVASC [Concomitant]
     Active Substance: AMLODIPINE BESYLATE
     Dosage: 1 DF, UNK
     Route: 048
  11. CARDIOASPIRIN [Concomitant]
     Active Substance: ASPIRIN
     Dosage: 1 DF, UNK
     Route: 048

REACTIONS (4)
  - Aphasia [Recovering/Resolving]
  - Psychomotor skills impaired [Recovering/Resolving]
  - Loss of consciousness [Recovering/Resolving]
  - Somnolence [Recovering/Resolving]

NARRATIVE: CASE EVENT DATE: 20150211
